FAERS Safety Report 5696590-1 (Version None)
Quarter: 2008Q2

REPORT INFORMATION
  Report Type: 
  Country: None (occurrence: None)
  Receive Date: 20080404
  Receipt Date: 20080404
  Transmission Date: 20081010
  Serious: Yes (Other)
  Sender: FDA-Public Use
  Company Number: None

PATIENT
  Sex: Female
  Weight: 74.8435 kg

DRUGS (1)
  1. SINGULAIR [Suspect]
     Indication: MULTIPLE ALLERGIES
     Dosage: 10 MG ONCE A DAY PO
     Route: 048
     Dates: start: 20080325, end: 20080328

REACTIONS (4)
  - DEPRESSION [None]
  - HYPERSENSITIVITY [None]
  - INSOMNIA [None]
  - UNEVALUABLE EVENT [None]
